FAERS Safety Report 5994012-4 (Version None)
Quarter: 2008Q4

REPORT INFORMATION
  Report Type: 
  Country: None (occurrence: None)
  Receive Date: 20081212
  Receipt Date: 20081105
  Transmission Date: 20090506
  Serious: No
  Sender: FDA-Public Use
  Company Number: US-ABBOTT-08P-163-0471216-00

PATIENT
  Sex: Female
  Weight: 44.946 kg

DRUGS (6)
  1. HUMIRA [Suspect]
     Indication: RHEUMATOID ARTHRITIS
     Route: 050
     Dates: start: 20080710, end: 20080801
  2. HUMIRA [Suspect]
     Route: 058
     Dates: start: 20080812
  3. PREDNISONE TAB [Concomitant]
     Indication: RHEUMATOID ARTHRITIS
     Route: 048
     Dates: start: 20080101, end: 20080201
  4. PREDNISONE TAB [Concomitant]
     Route: 048
     Dates: start: 20080201
  5. VITAMINS [Concomitant]
     Indication: DRUG USE FOR UNKNOWN INDICATION
     Dosage: 1 PILL ONCE DAILY
     Route: 048
  6. ACETAMINOPHEN [Concomitant]
     Indication: PAIN
     Dosage: 1-2 PILLD AS REQUIRED
     Route: 048

REACTIONS (5)
  - AMNESIA [None]
  - FATIGUE [None]
  - HEADACHE [None]
  - RHEUMATOID ARTHRITIS [None]
  - VISUAL ACUITY REDUCED [None]
